FAERS Safety Report 9018163 (Version 1)
Quarter: 2013Q1

REPORT INFORMATION
  Report Type: Spontaneous
  Country: US (occurrence: None)
  Receive Date: 20130111
  Receipt Date: 20130111
  Transmission Date: 20140127
  Serious: Yes (Life-Threatening)
  Sender: FDA-Public Use
  Company Number: None

PATIENT
  Sex: Female
  Weight: 88 kg

DRUGS (5)
  1. OXYCODONE HCL [Suspect]
     Dosage: 1 PILL EVERY 12 HOURS PO
     Route: 048
     Dates: start: 20121222, end: 20130122
  2. NEURONTIN [Concomitant]
  3. HYDROCODON [Concomitant]
  4. ATIVAN [Concomitant]
  5. AMBIEN [Concomitant]

REACTIONS (7)
  - Somnolence [None]
  - Disorientation [None]
  - Muscle spasticity [None]
  - Speech disorder [None]
  - Visual impairment [None]
  - Product colour issue [None]
  - Product substitution issue [None]
